FAERS Safety Report 11197183 (Version 1)
Quarter: 2015Q2

REPORT INFORMATION
  Report Type: Spontaneous
  Country: US (occurrence: US)
  Receive Date: 20150617
  Receipt Date: 20150617
  Transmission Date: 20150821
  Serious: No
  Sender: FDA-Public Use
  Company Number: US-SA-2014SA091127

PATIENT
  Age: 50 Year
  Sex: Female
  Weight: 62.59 kg

DRUGS (1)
  1. CEREZYME [Suspect]
     Active Substance: IMIGLUCERASE
     Indication: GAUCHER^S DISEASE
     Dosage: DOSE:64 UNIT(S)/KILOGRAM BODYWEIGHT
     Route: 042
     Dates: start: 20140402

REACTIONS (2)
  - Joint swelling [Unknown]
  - Pain [Recovering/Resolving]
